FAERS Safety Report 19125419 (Version 1)
Quarter: 2021Q2

REPORT INFORMATION
  Report Type: Spontaneous
  Country: CN (occurrence: CN)
  Receive Date: 20210413
  Receipt Date: 20210413
  Transmission Date: 20210717
  Serious: Yes (Other)
  Sender: FDA-Public Use
  Company Number: NVSC2021CN081167

PATIENT
  Age: 77 Year
  Sex: Female

DRUGS (2)
  1. EXFORGE [Suspect]
     Active Substance: AMLODIPINE BESYLATE\VALSARTAN
     Indication: PRODUCT USED FOR UNKNOWN INDICATION
     Dosage: 1 DF, QD
     Route: 048
  2. EXFORGE [Suspect]
     Active Substance: AMLODIPINE BESYLATE\VALSARTAN
     Dosage: HALF OF 1 TABLET
     Route: 048

REACTIONS (5)
  - Headache [Unknown]
  - Incorrect dose administered [Unknown]
  - Drug ineffective [Unknown]
  - Hypertension [Unknown]
  - Tachycardia [Unknown]

NARRATIVE: CASE EVENT DATE: 202008
